FAERS Safety Report 7333916-7 (Version None)
Quarter: 2011Q1

REPORT INFORMATION
  Report Type: 
  Country: None (occurrence: None)
  Receive Date: 20110307
  Receipt Date: 20110222
  Transmission Date: 20110831
  Serious: Yes (Hospitalization, Other)
  Sender: FDA-Public Use
  Company Number: US-BIOGENIDEC-2011BI000822

PATIENT
  Sex: Female
  Weight: 106 kg

DRUGS (22)
  1. CARBAMAZEPINE [Concomitant]
     Indication: MULTIPLE SCLEROSIS RELAPSE
     Route: 048
  2. FUROSEMIDE [Concomitant]
     Indication: SWELLING
     Route: 048
  3. TUMS [Concomitant]
  4. NEURONTIN [Concomitant]
     Indication: NEURALGIA
  5. TOPAMAX [Concomitant]
     Indication: MIGRAINE
     Route: 048
  6. MICARDIS [Concomitant]
  7. ASPIRIN [Concomitant]
     Route: 048
  8. AMLODIPINE [Concomitant]
  9. AVONEX [Suspect]
     Route: 030
     Dates: start: 20000804, end: 20090213
  10. ADVIL LIQUI-GELS [Concomitant]
  11. TYLENOL PM [Concomitant]
  12. LASIX [Concomitant]
  13. ZOCOR [Concomitant]
     Route: 048
  14. NAPROSYN [Concomitant]
     Indication: ADVERSE DRUG REACTION
  15. TYLENOL (CAPLET) [Concomitant]
     Route: 048
  16. VITAMIN D [Concomitant]
  17. TYLENOL W/ CODEINE NO. 3 [Concomitant]
     Indication: SCIATICA
     Route: 048
  18. HYDROCODONE BITARTRATE AND IBUPROFEN [Concomitant]
     Indication: PAIN
     Route: 048
  19. AVONEX [Suspect]
     Indication: MULTIPLE SCLEROSIS
     Route: 030
     Dates: start: 20080701
  20. MIRAPEX [Concomitant]
     Indication: RESTLESS LEGS SYNDROME
     Route: 048
  21. BACLOFEN [Concomitant]
  22. HYDROCHLOROTHIAZIDE [Concomitant]
     Route: 048

REACTIONS (5)
  - CAROTID ARTERY STENOSIS [None]
  - AORTIC ANEURYSM [None]
  - RENAL FAILURE [None]
  - FEMORAL ARTERIAL STENOSIS [None]
  - PERIPHERAL ARTERY ANEURYSM [None]
